FAERS Safety Report 7994658-8 (Version None)
Quarter: 2011Q4

REPORT INFORMATION
  Report Type: 
  Country: None (occurrence: None)
  Receive Date: 20111220
  Receipt Date: 20111206
  Transmission Date: 20120403
  Serious: Yes (Hospitalization)
  Sender: FDA-Public Use
  Company Number: US-JNJFOC-20070900279

PATIENT
  Sex: Female
  Weight: 90.27 kg

DRUGS (17)
  1. INFLIXIMAB [Suspect]
     Route: 042
     Dates: start: 20040624
  2. INFLIXIMAB [Suspect]
     Route: 042
     Dates: start: 20040722
  3. INFLIXIMAB [Suspect]
     Route: 042
     Dates: start: 20020717
  4. INFLIXIMAB [Suspect]
     Route: 042
     Dates: start: 20030320
  5. INFLIXIMAB [Suspect]
     Route: 042
     Dates: start: 20021002
  6. METHOTREXATE [Concomitant]
     Indication: CROHN'S DISEASE
  7. INFLIXIMAB [Suspect]
     Route: 042
     Dates: start: 20040610
  8. INFLIXIMAB [Suspect]
     Route: 042
     Dates: start: 20030117
  9. INFLIXIMAB [Suspect]
     Route: 042
     Dates: start: 20031211
  10. INFLIXIMAB [Suspect]
     Route: 042
     Dates: start: 20040916
  11. INFLIXIMAB [Suspect]
     Route: 042
     Dates: start: 20030626
  12. INFLIXIMAB [Suspect]
     Route: 042
     Dates: start: 20030917
  13. INFLIXIMAB [Suspect]
     Route: 042
     Dates: start: 20060831
  14. INFLIXIMAB [Suspect]
     Route: 042
     Dates: start: 20061026
  15. INFLIXIMAB [Suspect]
     Route: 042
     Dates: start: 20070207
  16. INFLIXIMAB [Suspect]
     Route: 042
     Dates: start: 20041111
  17. INFLIXIMAB [Suspect]
     Indication: CROHN'S DISEASE
     Route: 042
     Dates: start: 20061229

REACTIONS (2)
  - SMALL INTESTINAL OBSTRUCTION [None]
  - SALPINGO-OOPHORECTOMY [None]
